FAERS Safety Report 7426540-9 (Version None)
Quarter: 2011Q2

REPORT INFORMATION
  Report Type: 
  Country: None (occurrence: None)
  Receive Date: 20110420
  Receipt Date: 20110406
  Transmission Date: 20111010
  Serious: Yes (Hospitalization)
  Sender: FDA-Public Use
  Company Number: US-JNJFOC-20110403290

PATIENT
  Age: 24 Year
  Sex: Female

DRUGS (3)
  1. ORAL STEROIDS [Concomitant]
     Indication: COLITIS ULCERATIVE
     Dosage: SELF PULSING
     Route: 048
  2. REMICADE [Suspect]
     Indication: COLITIS ULCERATIVE
     Route: 042
  3. MERCAPTOPURINE [Concomitant]
     Indication: COLITIS ULCERATIVE

REACTIONS (6)
  - HYPERHIDROSIS [None]
  - CELLULITIS [None]
  - COLITIS ULCERATIVE [None]
  - ABDOMINAL ABSCESS [None]
  - CHILLS [None]
  - TACHYCARDIA [None]
